FAERS Safety Report 22048544 (Version 1)
Quarter: 2023Q1

REPORT INFORMATION
  Report Type: Spontaneous
  Country: US (occurrence: US)
  Receive Date: 20230301
  Receipt Date: 20230301
  Transmission Date: 20230418
  Serious: No
  Sender: FDA-Public Use
  Company Number: US-ABBVIE-4321777

PATIENT
  Sex: Male

DRUGS (1)
  1. LUPRON DEPOT [Suspect]
     Active Substance: LEUPROLIDE ACETATE
     Indication: Prostate cancer
     Dosage: 7.5MG EVERY 1 MONTH, FOR 6 MONTHS?FREQUENCY TEXT: 1 MONTH
     Route: 065

REACTIONS (2)
  - Feeling of body temperature change [Unknown]
  - Blood testosterone decreased [Unknown]
